FAERS Safety Report 4432822-5 (Version None)
Quarter: 2004Q3

REPORT INFORMATION
  Report Type: 
  Country: None (occurrence: None)
  Receive Date: 20040823
  Receipt Date: 20040806
  Transmission Date: 20050211
  Serious: No
  Sender: FDA-Public Use
  Company Number: 04H-020-0270126-00

PATIENT
  Age: 45 Year
  Sex: Female

DRUGS (4)
  1. DOBUTAMINE HCL [Suspect]
     Indication: STRESS ECHOCARDIOGRAM
     Dosage: 40 MCG/KG/MIN, INTRAVENOUS
     Route: 042
  2. ATROPINE [Suspect]
     Indication: STRESS ECHOCARDIOGRAM
     Dosage: 0.25 MG, INTRAVENOUS
     Route: 042
  3. ENALAPRIL [Concomitant]
  4. HTCZ [Concomitant]

REACTIONS (3)
  - ARTERIOSPASM CORONARY [None]
  - DRUG INTERACTION [None]
  - MYOCARDIAL ISCHAEMIA [None]
